FAERS Safety Report 15789683 (Version 1)
Quarter: 2019Q1

REPORT INFORMATION
  Report Type: Spontaneous
  Country: IT (occurrence: IT)
  Receive Date: 20190104
  Receipt Date: 20190104
  Transmission Date: 20190417
  Serious: Yes (Other)
  Sender: FDA-Public Use
  Company Number: IT-PFIZER INC-2019004303

PATIENT
  Age: 27 Year
  Sex: Male

DRUGS (1)
  1. PAMIDRONATE DISODIUM. [Suspect]
     Active Substance: PAMIDRONATE DISODIUM
     Indication: OSTEONECROSIS
     Dosage: 45 MG, UNK (THREE CONSECUTIVE DAYS EVERY FOUR WEEKS)
     Route: 042

REACTIONS (2)
  - Thrombophlebitis [Unknown]
  - Pyrexia [Recovered/Resolved]
